FAERS Safety Report 8608411-5 (Version None)
Quarter: 2012Q3

REPORT INFORMATION
  Report Type: 
  Country: None (occurrence: None)
  Receive Date: 20120808
  Receipt Date: 20120723
  Transmission Date: 20120928
  Serious: Yes (Hospitalization, Other)
  Sender: FDA-Public Use
  Company Number: JP-20120040

PATIENT
  Sex: Female

DRUGS (1)
  1. OML (LIPIDOL ULTRA FLUIDE) (ETHIODIZED OIL), UNKNOWN [Suspect]
     Indication: SALPINGOGRAM
     Dosage: VAGINAL
     Route: 067

REACTIONS (2)
  - MEDICATION RESIDUE [None]
  - PERITONITIS [None]
